FAERS Safety Report 7558907-2 (Version None)
Quarter: 2011Q2

REPORT INFORMATION
  Report Type: 
  Country: None (occurrence: None)
  Receive Date: 20110613
  Receipt Date: 20110527
  Transmission Date: 20111010
  Serious: Yes (Hospitalization, Other)
  Sender: FDA-Public Use
  Company Number: THQ2011A02684

PATIENT
  Age: 65 Year
  Sex: Male

DRUGS (9)
  1. PRIMASPAN (ACETYLSALICYLIC ACID) [Concomitant]
  2. RISOPROLOL [Concomitant]
  3. ATORVASTATIN [Concomitant]
  4. METFORMIN (METFORMIN HYDROCHLORIDE) [Concomitant]
  5. EXFORGE [Concomitant]
  6. ACTOS [Suspect]
     Dosage: 15 MG (1 D) PER ORAL
     Route: 048
     Dates: start: 20100101, end: 20110415
  7. PLAVIX [Concomitant]
  8. ORMOX (ISOSORBIDE MONONITRATE) [Concomitant]
  9. DINIT (ISOSORBIDE DINITRATE) [Concomitant]

REACTIONS (4)
  - MITRAL VALVE INCOMPETENCE [None]
  - CORONARY ARTERY DISEASE [None]
  - CARDIAC FAILURE [None]
  - AORTIC VALVE CALCIFICATION [None]
